FAERS Safety Report 9666442 (Version 1)
Quarter: 2013Q4

REPORT INFORMATION
  Report Type: Spontaneous
  Country: IT (occurrence: IT)
  Receive Date: 20131104
  Receipt Date: 20131104
  Transmission Date: 20140711
  Serious: Yes (Hospitalization)
  Sender: FDA-Public Use
  Company Number: IT-BAYER-2013-129589

PATIENT
  Age: 87 Year
  Sex: Female

DRUGS (1)
  1. CIPROXIN 500 MG FILM-COATED TABLETS [Suspect]
     Indication: URINARY TRACT INFECTION
     Dosage: DAILY DOSE 500 MG
     Route: 048
     Dates: start: 20130731, end: 20130802

REACTIONS (3)
  - Epilepsy [Recovered/Resolved]
  - Bradykinesia [Recovered/Resolved]
  - Bradyphrenia [Recovered/Resolved]
